FAERS Safety Report 8236968-5 (Version None)
Quarter: 2012Q1

REPORT INFORMATION
  Report Type: 
  Country: None (occurrence: None)
  Receive Date: 20120327
  Receipt Date: 20120321
  Transmission Date: 20120608
  Serious: Yes (Other)
  Sender: FDA-Public Use
  Company Number: PHEH2012US006553

PATIENT
  Sex: Female

DRUGS (1)
  1. GLEEVEC [Suspect]
     Indication: CHRONIC MYELOID LEUKAEMIA
     Dosage: 600 MG, QD (6 TABLETS DAILY)
     Route: 048
     Dates: start: 20070808

REACTIONS (3)
  - EYE SWELLING [None]
  - CHOLELITHIASIS [None]
  - FLUID RETENTION [None]
